FAERS Safety Report 12076578 (Version 2)
Quarter: 2016Q1

REPORT INFORMATION
  Report Type: Report from Study
  Country: DO (occurrence: DO)
  Receive Date: 20160215
  Receipt Date: 20160301
  Transmission Date: 20160526
  Serious: Yes (Other)
  Sender: FDA-Public Use
  Company Number: PHHY2016DO018983

PATIENT
  Age: 79 Year
  Sex: Female

DRUGS (2)
  1. CO-DIOVAN [Suspect]
     Active Substance: HYDROCHLOROTHIAZIDE\VALSARTAN
     Indication: HYPERTENSION
     Dosage: 1 DF (HYDROCHLOROTHIAZIDE 25 MG AND VALSARTAN 320 MG ), UNK
     Route: 065
  2. HUMALIN [Concomitant]
     Active Substance: INSULIN NOS
     Indication: PRODUCT USED FOR UNKNOWN INDICATION
     Dosage: 30 U, UNK
     Route: 058

REACTIONS (8)
  - Blindness unilateral [Unknown]
  - Glaucoma [Recovering/Resolving]
  - Eye pain [Recovering/Resolving]
  - Cerebrovascular accident [Recovered/Resolved]
  - Ocular hyperaemia [Recovering/Resolving]
  - Malaise [Unknown]
  - Cataract [Recovering/Resolving]
  - Visual acuity reduced [Unknown]

NARRATIVE: CASE EVENT DATE: 201502
